FAERS Safety Report 23843674 (Version 1)
Quarter: 2024Q2

REPORT INFORMATION
  Report Type: Spontaneous
  Country: FR (occurrence: FR)
  Receive Date: 20240510
  Receipt Date: 20240510
  Transmission Date: 20240716
  Serious: Yes (Life-Threatening, Disabling)
  Sender: FDA-Public Use
  Company Number: None

PATIENT
  Age: 53 Year
  Sex: Female
  Weight: 90 kg

DRUGS (5)
  1. GABAPENTIN [Suspect]
     Active Substance: GABAPENTIN
     Indication: Toxicity to various agents
     Dosage: TIME INTERVAL: TOTAL
     Route: 065
     Dates: start: 20231001, end: 20231001
  2. DAFALGAN CODEINE [Suspect]
     Active Substance: ACETAMINOPHEN\CODEINE PHOSPHATE
     Indication: Toxicity to various agents
     Dosage: TIME INTERVAL: TOTAL
     Route: 065
     Dates: start: 20231001, end: 20231001
  3. LORAZEPAM [Concomitant]
     Active Substance: LORAZEPAM
     Indication: Product used for unknown indication
     Dosage: 2.5 MG MORNING AND EVENING
     Route: 065
     Dates: start: 20230807
  4. DULOXETINE [Concomitant]
     Active Substance: DULOXETINE
     Indication: Major depression
     Dosage: 60 MG MORNING, DULOXETINE HYDROCHLORIDE
     Route: 065
     Dates: start: 20230807
  5. ZOPICLONE [Concomitant]
     Active Substance: ZOPICLONE
     Indication: Product used for unknown indication
     Dosage: 7.5 MG EVENING
     Route: 065
     Dates: start: 20230807

REACTIONS (4)
  - Brain hypoxia [Recovering/Resolving]
  - Hepatic failure [Recovered/Resolved with Sequelae]
  - Coma [Recovered/Resolved with Sequelae]
  - Poisoning deliberate [Recovered/Resolved]

NARRATIVE: CASE EVENT DATE: 20231001
